FAERS Safety Report 13392395 (Version 1)
Quarter: 2017Q1

REPORT INFORMATION
  Report Type: Spontaneous
  Country: US (occurrence: US)
  Receive Date: 20170331
  Receipt Date: 20170331
  Transmission Date: 20170429
  Serious: Yes (Other)
  Sender: FDA-Public Use
  Company Number: US-TEVA-755224USA

PATIENT
  Sex: Male

DRUGS (1)
  1. FENTANYL. [Suspect]
     Active Substance: FENTANYL
     Indication: PAIN
     Dosage: 50 MCG/5
     Route: 062
     Dates: end: 20170327

REACTIONS (7)
  - Herpes virus infection [Unknown]
  - Application site burn [Unknown]
  - Application site haemorrhage [Unknown]
  - Anaphylactic shock [Unknown]
  - Pyrexia [Unknown]
  - Application site inflammation [Unknown]
  - Application site vesicles [Unknown]

NARRATIVE: CASE EVENT DATE: 20170327
